FAERS Safety Report 12072848 (Version 2)
Quarter: 2016Q1

REPORT INFORMATION
  Report Type: Spontaneous
  Country: US (occurrence: US)
  Receive Date: 20160212
  Receipt Date: 20160302
  Transmission Date: 20160526
  Serious: No
  Sender: FDA-Public Use
  Company Number: US-PFIZER INC-2016071701

PATIENT
  Age: 63 Year
  Sex: Female

DRUGS (4)
  1. VIAGRA [Suspect]
     Active Substance: SILDENAFIL CITRATE
     Indication: THROMBOANGIITIS OBLITERANS
  2. VIAGRA [Suspect]
     Active Substance: SILDENAFIL CITRATE
     Indication: REYNOLD^S SYNDROME
     Dosage: 100 MG, DAILY
  3. VIAGRA [Suspect]
     Active Substance: SILDENAFIL CITRATE
     Indication: PAIN IN EXTREMITY
  4. VIAGRA [Suspect]
     Active Substance: SILDENAFIL CITRATE
     Indication: LIMB INJURY

REACTIONS (3)
  - Therapeutic response unexpected [Unknown]
  - Pre-existing condition improved [Unknown]
  - Product use issue [Unknown]
